FAERS Safety Report 9459816 (Version 2)
Quarter: 2013Q4

REPORT INFORMATION
  Report Type: Spontaneous
  Country: US (occurrence: US)
  Receive Date: 20130815
  Receipt Date: 20131004
  Transmission Date: 20140711
  Serious: Yes (Hospitalization, Other)
  Sender: FDA-Public Use
  Company Number: US-PFIZER INC-2013234590

PATIENT
  Age: 70 Year
  Sex: Female
  Weight: 72.56 kg

DRUGS (3)
  1. LYRICA [Suspect]
     Indication: NEURALGIA
     Dosage: 150 MG, 2X/DAY
     Route: 048
     Dates: start: 2012
  2. LISINOPRIL [Suspect]
     Indication: HYPERTENSION
     Dosage: UNK
     Dates: start: 2013
  3. PROPRANOLOL [Suspect]
     Indication: HYPERTENSION
     Dosage: UNK
     Dates: start: 2013

REACTIONS (5)
  - Myocardial infarction [Unknown]
  - Drug ineffective [Unknown]
  - Blood glucose increased [Unknown]
  - Overdose [Unknown]
  - Sedation [Unknown]
